FAERS Safety Report 8567606-X (Version None)
Quarter: 2012Q3

REPORT INFORMATION
  Report Type: 
  Country: None (occurrence: None)
  Receive Date: 20120803
  Receipt Date: 20120723
  Transmission Date: 20120928
  Serious: Yes (Death)
  Sender: FDA-Public Use
  Company Number: NL-ACTELION-A-CH2012-69410

PATIENT
  Age: 7 Year
  Sex: Female

DRUGS (1)
  1. ZAVESCA [Suspect]
     Indication: NIEMANN-PICK DISEASE
     Dosage: 200 MG, OD
     Route: 048
     Dates: start: 20070405, end: 20080129

REACTIONS (2)
  - RESPIRATORY FAILURE [None]
  - NIEMANN-PICK DISEASE [None]
